FAERS Safety Report 22532768 (Version 1)
Quarter: 2023Q2

REPORT INFORMATION
  Report Type: Report from Study
  Country: CN (occurrence: CN)
  Receive Date: 20230607
  Receipt Date: 20230607
  Transmission Date: 20230721
  Serious: Yes (Death, Hospitalization, Other)
  Sender: FDA-Public Use
  Company Number: CN-002147023-NVSC2021CN127352

PATIENT
  Age: 53 Year
  Sex: Female
  Weight: 48 kg

DRUGS (13)
  1. TYKERB [Suspect]
     Active Substance: LAPATINIB DITOSYLATE
     Indication: Breast cancer
     Dosage: 1250 MG, QD FOR 21 DAYS
     Route: 048
     Dates: start: 20210511, end: 20210520
  2. TYKERB [Suspect]
     Active Substance: LAPATINIB DITOSYLATE
     Dosage: 1250 MG, QD FOR 21 DAYS
     Route: 048
     Dates: start: 20210511, end: 20210520
  3. CAPECITABINE [Suspect]
     Active Substance: CAPECITABINE
     Indication: Breast cancer metastatic
     Dosage: 1300 MG, BID FOR 21 DAYS (DAY 1 TO DAY 14)
     Route: 048
     Dates: start: 20210511, end: 20210520
  4. CAPECITABINE [Suspect]
     Active Substance: CAPECITABINE
     Dosage: 1300 MG, BID FOR 21 DAYS (DAY 1 TO DAY 14)
     Route: 048
     Dates: start: 20210511, end: 20210520
  5. CAPECITABINE [Suspect]
     Active Substance: CAPECITABINE
     Dosage: 1300 MG, BID FOR 21 DAYS (DAY 1 TO DAY 14)
     Route: 048
     Dates: start: 20210511, end: 20210520
  6. CAPECITABINE [Suspect]
     Active Substance: CAPECITABINE
     Dosage: 1300 MG, BID FOR 21 DAYS (DAY 1 TO DAY 14)
     Route: 048
  7. CAPECITABINE [Suspect]
     Active Substance: CAPECITABINE
     Dosage: 1300 MG, BID FOR 21 DAYS (DAY 1 TO DAY 14)
     Route: 048
  8. CAPECITABINE [Suspect]
     Active Substance: CAPECITABINE
     Dosage: 1300 MG, BID FOR 21 DAYS (DAY 1 TO DAY 14)
     Route: 048
  9. CAPECITABINE [Suspect]
     Active Substance: CAPECITABINE
     Dosage: 1300 MG, BID FOR 21 DAYS (DAY 1 TO DAY 14)
     Route: 048
  10. CAPECITABINE [Suspect]
     Active Substance: CAPECITABINE
     Dosage: 1300 MG, BID FOR 21 DAYS (DAY 1 TO DAY 14)
     Route: 048
  11. CAPECITABINE [Suspect]
     Active Substance: CAPECITABINE
     Dosage: 1300 MG, BID FOR 21 DAYS (DAY 1 TO DAY 14)
     Route: 048
  12. CAPECITABINE [Suspect]
     Active Substance: CAPECITABINE
     Dosage: 1300 MG, BID FOR 21 DAYS (DAY 1 TO DAY 14)
     Route: 048
  13. AROMASIN [Concomitant]
     Active Substance: EXEMESTANE
     Indication: Product used for unknown indication
     Dosage: UNK
     Route: 065

REACTIONS (11)
  - Breast cancer metastatic [Fatal]
  - Malignant neoplasm progression [Fatal]
  - Aspartate aminotransferase increased [Not Recovered/Not Resolved]
  - Hepatic function abnormal [Not Recovered/Not Resolved]
  - Metastases to liver [Unknown]
  - Ascites [Unknown]
  - Abdominal distension [Unknown]
  - Abdominal pain [Unknown]
  - Back pain [Unknown]
  - Decreased appetite [Unknown]
  - Asthenia [Unknown]

NARRATIVE: CASE EVENT DATE: 20210518
